FAERS Safety Report 7497506-8 (Version None)
Quarter: 2011Q2

REPORT INFORMATION
  Report Type: 
  Country: None (occurrence: None)
  Receive Date: 20110523
  Receipt Date: 20110511
  Transmission Date: 20111010
  Serious: Yes (Other)
  Sender: FDA-Public Use
  Company Number: US-UCBSA-030753

PATIENT
  Sex: Female
  Weight: 86.18 kg

DRUGS (9)
  1. LOTENSEN [Concomitant]
     Indication: HYPERTENSION
     Route: 048
  2. PRILOSEC [Concomitant]
     Indication: DYSPEPSIA
     Route: 048
  3. LOVAZA [Concomitant]
     Indication: ARTHRALGIA
     Route: 048
     Dates: start: 20090101
  4. CIMZIA [Suspect]
     Indication: RHEUMATOID ARTHRITIS
     Dosage: LOADING DOSE 400 MG EVERY TWO WEEKS, 3 DOSES
     Route: 058
     Dates: start: 20110201, end: 20110101
  5. SYNTHROID [Concomitant]
     Indication: HYPOTHYROIDISM
     Route: 048
  6. METHOTREXATE [Concomitant]
     Indication: RHEUMATOID ARTHRITIS
     Route: 048
     Dates: start: 20070701
  7. CIMZIA [Suspect]
     Route: 058
     Dates: start: 20110301, end: 20110406
  8. HYDROCHLOROTHIAZIDE [Concomitant]
     Indication: NEPHROLITHIASIS
     Route: 048
  9. FOLIC ACID [Concomitant]
     Indication: DRUG TOXICITY PROPHYLAXIS
     Route: 048
     Dates: start: 20070701

REACTIONS (1)
  - PSORIASIS [None]
